FAERS Safety Report 9648163 (Version 2)
Quarter: 2013Q4

REPORT INFORMATION
  Report Type: Report from Study
  Country: VE (occurrence: VE)
  Receive Date: 20131028
  Receipt Date: 20131028
  Transmission Date: 20140711
  Serious: Yes (Hospitalization, Other)
  Sender: FDA-Public Use
  Company Number: PHHY2013VE117980

PATIENT
  Age: 39 Year
  Sex: Female

DRUGS (3)
  1. TASIGNA [Suspect]
     Indication: CHRONIC MYELOID LEUKAEMIA
     Dosage: 400 MG, DAILY
     Route: 048
     Dates: start: 201302
  2. TASIGNA [Suspect]
     Dosage: 200 MG, DAILY
     Dates: end: 201307
  3. RANITIDINE [Concomitant]

REACTIONS (8)
  - Tonsillitis [Recovered/Resolved]
  - Pyrexia [Recovered/Resolved]
  - Oropharyngeal pain [Recovered/Resolved]
  - Speech disorder [Recovered/Resolved]
  - Dysphagia [Recovered/Resolved]
  - White blood cell count decreased [Recovered/Resolved]
  - Gastritis [Recovered/Resolved]
  - Abdominal pain [Recovered/Resolved]
